FAERS Safety Report 8837818 (Version 1)
Quarter: 2012Q4

REPORT INFORMATION
  Report Type: 
  Country: US (occurrence: US)
  Receive Date: 20121012
  Receipt Date: 20121012
  Transmission Date: 20130627
  Serious: Yes (Other)
  Sender: FDA-Public Use
  Company Number: PHEH2012US019761

PATIENT
  Sex: Female

DRUGS (3)
  1. DIOVAN HCT [Suspect]
     Dosage: 1 DF, (valsartan 160 mg and hydrochlorothiazide 25 mg) daily
  2. MOTRIN [Concomitant]
     Dosage: 2 DF, daily
  3. LORTAB [Concomitant]
     Dosage: 2 DF, daily

REACTIONS (3)
  - Diabetes mellitus [Unknown]
  - Gait disturbance [Unknown]
  - Oedema peripheral [Unknown]
